FAERS Safety Report 4478625-7 (Version None)
Quarter: 2004Q4

REPORT INFORMATION
  Report Type: 
  Country: None (occurrence: None)
  Receive Date: 20041019
  Receipt Date: 20041013
  Transmission Date: 20050328
  Serious: Yes (Other)
  Sender: FDA-Public Use
  Company Number: US-MERCK-0410USA02044

PATIENT
  Age: 73 Year
  Sex: Female

DRUGS (5)
  1. VIOXX [Suspect]
     Route: 048
     Dates: start: 20000101, end: 20030101
  2. PRILOSEC [Concomitant]
     Route: 065
  3. VASOTEC [Concomitant]
     Route: 048
  4. DITROPAN XL [Concomitant]
     Route: 065
  5. KLONOPIN [Concomitant]
     Route: 065

REACTIONS (2)
  - HYPERTENSION [None]
  - MYOCARDIAL INFARCTION [None]
